FAERS Safety Report 7552669-0 (Version None)
Quarter: 2011Q2

REPORT INFORMATION
  Report Type: 
  Country: None (occurrence: None)
  Receive Date: 20110616
  Receipt Date: 20110615
  Transmission Date: 20111010
  Serious: Yes (Other)
  Sender: FDA-Public Use
  Company Number: DE-AMGEN-DEUSP2011030592

PATIENT
  Sex: Female

DRUGS (2)
  1. ANTINEOPLASTIC AGENTS [Concomitant]
  2. NEULASTA [Suspect]
     Indication: CHEMOTHERAPY

REACTIONS (2)
  - BACK PAIN [None]
  - BONE PAIN [None]
